FAERS Safety Report 8713032 (Version 5)
Quarter: 2013Q3

REPORT INFORMATION
  Report Type: Spontaneous
  Country: PR (occurrence: PR)
  Receive Date: 20120808
  Receipt Date: 20130816
  Transmission Date: 20140515
  Serious: Yes (Hospitalization, Other)
  Sender: FDA-Public Use
  Company Number: PR-ABBOTT-12P-131-0964052-00

PATIENT
  Age: 29 Year
  Sex: Female
  Weight: 58.11 kg

DRUGS (3)
  1. HUMIRA 40 MG/0.8 ML PEN [Suspect]
     Indication: CROHN^S DISEASE
     Dosage: 1ST DOSE
     Route: 058
     Dates: start: 201201, end: 201201
  2. HUMIRA 40 MG/0.8 ML PEN [Suspect]
     Dosage: 2ND DOSE
     Route: 058
  3. HUMIRA 40 MG/0.8 ML PEN [Suspect]
     Route: 058
     Dates: end: 201206

REACTIONS (9)
  - Haemoglobin decreased [Recovered/Resolved]
  - Gallbladder disorder [Unknown]
  - Gallbladder disorder [Recovered/Resolved]
  - Vomiting [Recovered/Resolved]
  - Abdominal pain upper [Recovered/Resolved]
  - Ileal stenosis [Recovered/Resolved]
  - Abdominal pain [Unknown]
  - Reproductive tract disorder [Unknown]
  - Abdominal pain [Recovered/Resolved]
